FAERS Safety Report 9593945 (Version 2)
Quarter: 2014Q1

REPORT INFORMATION
  Report Type: Spontaneous
  Country: US (occurrence: None)
  Receive Date: 20130930
  Receipt Date: 20131223
  Transmission Date: 20141002
  Serious: No
  Sender: FDA-Public Use
  Company Number: 1000047767

PATIENT
  Age: 89 Year
  Sex: Female

DRUGS (3)
  1. LINZESS [Suspect]
     Indication: CONSTIPATION
     Dosage: 145 MCG (145 MCG, 1 IN 1 D), ORAL
     Route: 048
     Dates: start: 20130812
  2. MIRALAX (POLYETHYLENE GLYCOL) [Concomitant]
  3. LISINOPRIL [Concomitant]

REACTIONS (3)
  - Abdominal pain upper [None]
  - Diarrhoea [None]
  - Anorectal discomfort [None]
